FAERS Safety Report 20738877 (Version 7)
Quarter: 2022Q3

REPORT INFORMATION
  Report Type: Report from Study
  Country: CA (occurrence: CA)
  Receive Date: 20220422
  Receipt Date: 20220914
  Transmission Date: 20221026
  Serious: Yes (Hospitalization, Other)
  Sender: FDA-Public Use
  Company Number: CA-TAKEDA-2022TUS024111

PATIENT
  Age: 43 Year
  Sex: Male

DRUGS (24)
  1. TEDUGLUTIDE [Suspect]
     Active Substance: TEDUGLUTIDE
     Indication: Short-bowel syndrome
     Dosage: 3.75 MILLIGRAM, QD
     Route: 058
     Dates: start: 20220331
  2. TEDUGLUTIDE [Suspect]
     Active Substance: TEDUGLUTIDE
     Indication: Short-bowel syndrome
     Dosage: 3.75 MILLIGRAM, QD
     Route: 058
     Dates: start: 20220331
  3. TEDUGLUTIDE [Suspect]
     Active Substance: TEDUGLUTIDE
     Indication: Short-bowel syndrome
     Dosage: 3.75 MILLIGRAM, QD
     Route: 058
     Dates: start: 20220331
  4. TEDUGLUTIDE [Suspect]
     Active Substance: TEDUGLUTIDE
     Indication: Short-bowel syndrome
     Dosage: 3.75 MILLIGRAM, QD
     Route: 058
     Dates: start: 20220331
  5. TEDUGLUTIDE [Suspect]
     Active Substance: TEDUGLUTIDE
     Dosage: UNK
     Route: 065
     Dates: start: 20220331
  6. TEDUGLUTIDE [Suspect]
     Active Substance: TEDUGLUTIDE
     Dosage: UNK
     Route: 065
     Dates: start: 20220331
  7. TEDUGLUTIDE [Suspect]
     Active Substance: TEDUGLUTIDE
     Dosage: UNK
     Route: 065
     Dates: start: 20220331
  8. TEDUGLUTIDE [Suspect]
     Active Substance: TEDUGLUTIDE
     Dosage: UNK
     Route: 065
     Dates: start: 20220331
  9. TEDUGLUTIDE [Suspect]
     Active Substance: TEDUGLUTIDE
     Dosage: 3.8 MILLIGRAM, QD
     Route: 058
     Dates: start: 20220331
  10. TEDUGLUTIDE [Suspect]
     Active Substance: TEDUGLUTIDE
     Dosage: 3.8 MILLIGRAM, QD
     Route: 058
     Dates: start: 20220331
  11. TEDUGLUTIDE [Suspect]
     Active Substance: TEDUGLUTIDE
     Dosage: 3.8 MILLIGRAM, QD
     Route: 058
     Dates: start: 20220331
  12. TEDUGLUTIDE [Suspect]
     Active Substance: TEDUGLUTIDE
     Dosage: 3.8 MILLIGRAM, QD
     Route: 058
     Dates: start: 20220331
  13. FLUCONAZOLE [Suspect]
     Active Substance: FLUCONAZOLE
     Indication: Product used for unknown indication
     Route: 065
  14. FLUCONAZOLE [Suspect]
     Active Substance: FLUCONAZOLE
     Dosage: 400 MILLIGRAM
     Route: 065
  15. ADALIMUMAB [Concomitant]
     Active Substance: ADALIMUMAB
     Indication: Product used for unknown indication
     Dosage: UNK
     Route: 065
  16. IMURAN [Concomitant]
     Active Substance: AZATHIOPRINE
     Indication: Product used for unknown indication
     Dosage: UNK
     Route: 065
  17. POTASSIUM [Concomitant]
     Active Substance: POTASSIUM
     Indication: Product used for unknown indication
     Dosage: UNK
     Route: 065
  18. POTASSIUM [Concomitant]
     Active Substance: POTASSIUM
     Dosage: 15 MILLIGRAM
     Route: 065
  19. MAGNESIUM [Concomitant]
     Active Substance: MAGNESIUM
     Indication: Product used for unknown indication
     Dosage: UNK
     Route: 065
  20. CODEINE [Concomitant]
     Active Substance: CODEINE
     Indication: Product used for unknown indication
  21. METAMUCIL [Concomitant]
     Active Substance: PLANTAGO SEED
  22. BUDESONIDE [Concomitant]
     Active Substance: BUDESONIDE
  23. PREDNISONE [Concomitant]
     Active Substance: PREDNISONE
     Indication: Crohn^s disease
     Dosage: 3 MILLIGRAM
     Route: 065
  24. CODEINE [Concomitant]
     Active Substance: CODEINE

REACTIONS (23)
  - Vascular device infection [Not Recovered/Not Resolved]
  - Stoma obstruction [Unknown]
  - Crohn^s disease [Not Recovered/Not Resolved]
  - Pyrexia [Recovered/Resolved]
  - Feeling hot [Unknown]
  - Memory impairment [Unknown]
  - Cough [Not Recovered/Not Resolved]
  - Visual impairment [Unknown]
  - Heart rate increased [Unknown]
  - Poor venous access [Unknown]
  - Accidental exposure to product [Unknown]
  - Needle issue [Unknown]
  - Device use issue [Unknown]
  - Product quality issue [Unknown]
  - Weight decreased [Unknown]
  - Gastrointestinal stoma output decreased [Unknown]
  - Rash [Not Recovered/Not Resolved]
  - Blood potassium decreased [Not Recovered/Not Resolved]
  - Therapy interrupted [Unknown]
  - Diarrhoea [Unknown]
  - C-reactive protein increased [Unknown]
  - Weight increased [Unknown]
  - Blood pressure increased [Unknown]

NARRATIVE: CASE EVENT DATE: 20220101
